FAERS Safety Report 21918768 (Version 3)
Quarter: 2023Q1

REPORT INFORMATION
  Report Type: Spontaneous
  Country: PH (occurrence: PH)
  Receive Date: 20230127
  Receipt Date: 20230310
  Transmission Date: 20230417
  Serious: Yes (Other)
  Sender: FDA-Public Use
  Company Number: PH-002147023-NVSC2023PH014863

PATIENT
  Age: 33 Year
  Sex: Female

DRUGS (1)
  1. TOBRADEX [Suspect]
     Active Substance: DEXAMETHASONE\TOBRAMYCIN
     Indication: Chemical burns of eye
     Dosage: 1 DRP, TID (3X A DAY THEN CHANGE TO 2X A DAY AFTER 3 DAYS)
     Route: 047
     Dates: start: 20230113, end: 20230121

REACTIONS (2)
  - Skin burning sensation [Not Recovered/Not Resolved]
  - Product physical issue [Unknown]

NARRATIVE: CASE EVENT DATE: 20230113
